FAERS Safety Report 21474406 (Version 1)
Quarter: 2022Q4

REPORT INFORMATION
  Report Type: Report from Study
  Country: NL (occurrence: NL)
  Receive Date: 20221018
  Receipt Date: 20221018
  Transmission Date: 20230113
  Serious: Yes (Disabling, Other)
  Sender: FDA-Public Use
  Company Number: NL-GENMAB-2022-00261

PATIENT
  Age: 38 Year
  Sex: Female
  Weight: 68.7 kg

DRUGS (29)
  1. TISOTUMAB VEDOTIN [Suspect]
     Active Substance: TISOTUMAB VEDOTIN
     Indication: Cervix cancer metastatic
     Dosage: 2.0 MILLIGRAM/KILOGRAM, 1Q3W (CYCLES 1-5)
     Route: 042
     Dates: start: 20201130, end: 20210301
  2. TISOTUMAB VEDOTIN [Suspect]
     Active Substance: TISOTUMAB VEDOTIN
     Dosage: 1.3 MILLIGRAM/KILOGRAM, 1Q3W (CYCLES 6-10)
     Route: 042
     Dates: start: 20210406, end: 20210628
  3. TISOTUMAB VEDOTIN [Suspect]
     Active Substance: TISOTUMAB VEDOTIN
     Dosage: 0.9 MILLIGRAM/KILOGRAM, 1Q3W (CYCLES 11-17)
     Route: 042
     Dates: start: 20210719, end: 20211122
  4. TISOTUMAB VEDOTIN [Suspect]
     Active Substance: TISOTUMAB VEDOTIN
     Dosage: 0.9 MILLIGRAM/KILOGRAM, 1Q3W (CYCLES 18-21)
     Route: 042
     Dates: start: 20220214, end: 20220620
  5. CARBOPLATIN [Suspect]
     Active Substance: CARBOPLATIN
     Indication: Cervix cancer metastatic
     Dosage: 5 AUC, 1Q3W (CYCLES 1-5)
     Route: 042
     Dates: start: 20201130, end: 20210301
  6. CARBOPLATIN [Suspect]
     Active Substance: CARBOPLATIN
     Dosage: 4 AUC, 1Q3W (CYCLES 6-8) (460MG)
     Route: 042
     Dates: start: 20210406, end: 20210517
  7. METOCLOPRAMIDE [Concomitant]
     Active Substance: METOCLOPRAMIDE
     Indication: Prophylaxis
     Dosage: 10 MILLIGRAM, PRN
     Route: 054
     Dates: start: 20201129
  8. METOCLOPRAMIDE [Concomitant]
     Active Substance: METOCLOPRAMIDE
     Dosage: 10 MILLIGRAM, PRN
     Route: 048
     Dates: start: 20201129
  9. LOPERAMIDE [Concomitant]
     Active Substance: LOPERAMIDE
     Indication: Diarrhoea
     Dosage: 2 MILLIGRAM, PRN
     Route: 048
     Dates: start: 20201207
  10. CARBOXYPOLYMETHYLENE\HYALURONATE SODIUM [Concomitant]
     Active Substance: CARBOXYPOLYMETHYLENE\HYALURONATE SODIUM
     Indication: Keratitis
     Dosage: 1 DROP, 8 TIMES PER DAY, BOTH EYES
     Route: 047
     Dates: start: 20210125
  11. CARBOXYPOLYMETHYLENE\HYALURONATE SODIUM [Concomitant]
     Active Substance: CARBOXYPOLYMETHYLENE\HYALURONATE SODIUM
     Indication: Blepharitis
  12. CARBOMER [Concomitant]
     Active Substance: CARBOMER
     Indication: Keratitis
     Dosage: 1 DROP, QD, BOTH EYES
     Route: 047
     Dates: start: 20210125
  13. CARBOMER [Concomitant]
     Active Substance: CARBOMER
     Indication: Blepharitis
  14. KETOTIFEN [Concomitant]
     Active Substance: KETOTIFEN
     Indication: Keratitis
     Dosage: 1 DROP, BID, BOTH EYES
     Route: 047
     Dates: start: 20210128
  15. KETOTIFEN [Concomitant]
     Active Substance: KETOTIFEN
     Indication: Blepharitis
  16. PROTAGENS [Concomitant]
     Indication: Prophylaxis
     Dosage: 1 DROP, QD, BOTH EYES
     Route: 047
     Dates: start: 20201130
  17. OFLOXACIN [Concomitant]
     Active Substance: OFLOXACIN
     Indication: Keratitis
     Dosage: 1 DROP, BID, LEFT EYE
     Route: 047
     Dates: start: 20210614
  18. OFLOXACIN [Concomitant]
     Active Substance: OFLOXACIN
     Indication: Prophylaxis
     Dosage: UNK
     Route: 065
     Dates: start: 20211214, end: 20220124
  19. IOBITRIDOL [Concomitant]
     Active Substance: IOBITRIDOL
     Dosage: UNK
     Route: 065
     Dates: start: 20220106, end: 20220106
  20. ONDANSETRON [Concomitant]
     Active Substance: ONDANSETRON
     Indication: Prophylaxis
     Dosage: 8 MILLIGRAM, WITH EVERY CYCLE
     Route: 042
     Dates: start: 20201221
  21. FLUTICASONE PROPIONATE [Concomitant]
     Active Substance: FLUTICASONE PROPIONATE
     Indication: Prophylaxis
     Dosage: 1 SPRAY, QD
     Route: 045
     Dates: start: 20210607
  22. FLUTICASONE [Concomitant]
     Active Substance: FLUTICASONE
     Indication: Prophylaxis
     Dosage: 1 APPLICATION, QD
     Route: 062
     Dates: start: 20210406
  23. HYPROMELLOSES [Concomitant]
     Active Substance: HYPROMELLOSES
     Indication: Prophylaxis
     Dosage: 1 DROP, FIVE TIMES DAILY
     Route: 047
     Dates: start: 20210614
  24. CYCLOSPORINE [Concomitant]
     Active Substance: CYCLOSPORINE
     Indication: Prophylaxis
     Dosage: 1 DROP, BID, LEFT EYE
     Route: 047
     Dates: start: 20210707, end: 20211109
  25. POVIDON [Concomitant]
     Indication: Prophylaxis
     Dosage: 1 DROP, QD, BOTH EYES
     Route: 047
     Dates: start: 20210707, end: 20220224
  26. DEXAMETHASONE [Concomitant]
     Active Substance: DEXAMETHASONE
     Indication: Keratitis
     Dosage: 1 DROP, QD, LEFT EYE
     Route: 047
     Dates: start: 20210614, end: 20210707
  27. DEXAMETHASONE [Concomitant]
     Active Substance: DEXAMETHASONE
     Indication: Prophylaxis
     Dosage: 1 DROP, QD, LEFT EYE
     Route: 047
     Dates: start: 20210707
  28. DURATEARS [DEXTRAN 70;HYPROMELLOSE] [Concomitant]
     Dosage: 1 GRAM, QID
     Route: 047
     Dates: start: 20210614, end: 20211012
  29. OFLOXACIN [Concomitant]
     Active Substance: OFLOXACIN
     Dosage: 1 APPLICATION, SIX TIMES DAILY, LEFT EYE
     Route: 047
     Dates: start: 20210614, end: 20211214

REACTIONS (3)
  - Corneal disorder [Not Recovered/Not Resolved]
  - Dry eye [Not Recovered/Not Resolved]
  - Ocular hyperaemia [Recovered/Resolved]

NARRATIVE: CASE EVENT DATE: 20210628
